FAERS Safety Report 8358436-2 (Version None)
Quarter: 2012Q2

REPORT INFORMATION
  Report Type: 
  Country: None (occurrence: None)
  Receive Date: 20120514
  Receipt Date: 20110812
  Transmission Date: 20120825
  Serious: No
  Sender: FDA-Public Use
  Company Number: US-TEVA-2011004268

PATIENT
  Sex: Female
  Weight: 69.008 kg

DRUGS (1)
  1. NUVIGIL [Suspect]
     Indication: NARCOLEPSY
     Dosage: 150 MILLIGRAM;
     Route: 048
     Dates: start: 20110401

REACTIONS (2)
  - ABNORMAL BEHAVIOUR [None]
  - BLEPHAROSPASM [None]
